FAERS Safety Report 16996216 (Version 1)
Quarter: 2019Q4

REPORT INFORMATION
  Report Type: Spontaneous
  Country: HR (occurrence: HR)
  Receive Date: 20191105
  Receipt Date: 20191105
  Transmission Date: 20200122
  Serious: Yes (Other)
  Sender: FDA-Public Use
  Company Number: HR-ELI_LILLY_AND_COMPANY-HR201910012839

PATIENT
  Age: 37 Year
  Weight: 88 kg

DRUGS (2)
  1. ZYPADHERA [Suspect]
     Active Substance: OLANZAPINE PAMOATE
     Indication: BIPOLAR I DISORDER
     Dosage: 405 MG, UNKNOWN
     Route: 030
     Dates: start: 20151209, end: 20190909
  2. LITIJEV KARBONAT JADRAN [Concomitant]
     Indication: BIPOLAR I DISORDER
     Dosage: 900 MG, DAILY
     Route: 048
     Dates: start: 20151207

REACTIONS (9)
  - Tachycardia [Recovered/Resolved]
  - Aggression [Recovered/Resolved]
  - Fear [Recovered/Resolved]
  - Paraesthesia [Recovered/Resolved]
  - Confusional state [Recovered/Resolved]
  - Agitation [Recovered/Resolved]
  - Ataxia [Recovered/Resolved]
  - Off label use [Unknown]
  - Post-injection delirium sedation syndrome [Recovered/Resolved]

NARRATIVE: CASE EVENT DATE: 20190909
